FAERS Safety Report 16342428 (Version 1)
Quarter: 2019Q2

REPORT INFORMATION
  Report Type: Spontaneous
  Country: US (occurrence: US)
  Receive Date: 20190522
  Receipt Date: 20190522
  Transmission Date: 20190711
  Serious: Yes (Life-Threatening, Hospitalization)
  Sender: FDA-Public Use
  Company Number: US-PFIZER INC-2019204705

PATIENT
  Age: 32 Year
  Sex: Male

DRUGS (1)
  1. HEPARIN SODIUM. [Suspect]
     Active Substance: HEPARIN SODIUM
     Indication: SUBACUTE ENDOCARDITIS
     Dosage: 20 MG, UNK
     Route: 041
     Dates: start: 1946, end: 1946

REACTIONS (1)
  - Hyperthermia [Recovering/Resolving]

NARRATIVE: CASE EVENT DATE: 1946
